FAERS Safety Report 9368112 (Version 1)
Quarter: 2013Q2

REPORT INFORMATION
  Report Type: Spontaneous
  Country: US (occurrence: US)
  Receive Date: 20130625
  Receipt Date: 20130625
  Transmission Date: 20140414
  Serious: No
  Sender: FDA-Public Use
  Company Number: US-ASTELLAS-2013US003970

PATIENT
  Sex: Female
  Weight: 77 kg

DRUGS (5)
  1. VESICARE [Suspect]
     Indication: MICTURITION URGENCY
     Dosage: 5 MG, UID/QD
     Route: 048
     Dates: start: 20130315, end: 20130322
  2. SYNTHROID [Concomitant]
     Indication: HYPOTHYROIDISM
     Dosage: 100 UG, UID/QD
     Route: 048
  3. LANSOPRAZOLE [Concomitant]
     Indication: GASTROINTESTINAL DISORDER
     Dosage: 30 MG, UID/QD
     Route: 048
  4. DIPHENOXYLATE/ATROPINE [Concomitant]
     Indication: IRRITABLE BOWEL SYNDROME
     Dosage: 2.5 MG, TWO TABLET AT NIGHT
     Route: 048
  5. PRAVASTATIN [Concomitant]
     Indication: BLOOD CHOLESTEROL
     Dosage: 20 MG, UID/QD
     Route: 048

REACTIONS (1)
  - Dry skin [Recovered/Resolved]
